FAERS Safety Report 9501137 (Version 1)
Quarter: 2013Q1

REPORT INFORMATION
  Report Type: Spontaneous
  Country: US (occurrence: None)
  Receive Date: 20130117
  Receipt Date: 20130117
  Transmission Date: 20140127
  Serious: Yes (Life-Threatening, Hospitalization)
  Sender: FDA-Public Use
  Company Number: 1211USA011698

PATIENT
  Age: 65 Year
  Sex: Female

DRUGS (3)
  1. DULERA [Suspect]
     Indication: ASTHMA
     Dosage: 2 PIFF, BID, RESPIRATORY
     Route: 055
     Dates: start: 201204, end: 20121125
  2. DULERA [Suspect]
     Indication: ASTHMA
     Dosage: 2 PUFF, BID, RESPIRATORY
     Route: 055
     Dates: start: 20121126
  3. ZESTRIL [Suspect]

REACTIONS (1)
  - Swollen tongue [None]
